FAERS Safety Report 25721666 (Version 1)
Quarter: 2025Q3

REPORT INFORMATION
  Report Type: Spontaneous
  Country: US (occurrence: None)
  Receive Date: 20250822
  Receipt Date: 20250822
  Transmission Date: 20251020
  Serious: Yes (Death)
  Sender: FDA-CTU
  Company Number: None

PATIENT
  Age: 55 Year
  Sex: Female

DRUGS (1)
  1. OFEV [Suspect]
     Active Substance: NINTEDANIB
     Indication: Pulmonary fibrosis
     Dosage: 100MG BID ORAL ?
     Route: 048
     Dates: start: 20250314, end: 20250710

REACTIONS (1)
  - Hospice care [None]

NARRATIVE: CASE EVENT DATE: 20250710
